FAERS Safety Report 18113509 (Version 3)
Quarter: 2020Q4

REPORT INFORMATION
  Report Type: Report from Study
  Country: US (occurrence: US)
  Receive Date: 20200805
  Receipt Date: 20201006
  Transmission Date: 20210113
  Serious: Yes (Death, Hospitalization)
  Sender: FDA-Public Use
  Company Number: US-RETROPHIN, INC.-2020RTN00078

PATIENT
  Age: 5 Month
  Sex: Male
  Weight: 8.21 kg

DRUGS (6)
  1. LEVETIRACETAM. [Concomitant]
     Active Substance: LEVETIRACETAM
     Dosage: 1.5 ML, 3X/DAY
     Route: 048
  2. AQUADEKS [Concomitant]
     Active Substance: MINERALS\VITAMINS
     Dosage: 1 ML, 2X/DAY
     Route: 048
  3. CHOLIC ACID [Suspect]
     Active Substance: CHOLIC ACID
     Dosage: 50 MG, 2X/DAY
     Route: 048
     Dates: start: 2020
  4. TOPAMAX [Suspect]
     Active Substance: TOPIRAMATE
     Dosage: 25 MG, 3X/DAY
     Route: 048
  5. ONFI [Concomitant]
     Active Substance: CLOBAZAM
     Dosage: 2.5 MG, 2X/DAY
     Route: 048
  6. CHOLIC ACID [Suspect]
     Active Substance: CHOLIC ACID
     Indication: CEREBROHEPATORENAL SYNDROME
     Dosage: 50 MG, 2X/DAY
     Route: 048
     Dates: start: 20191222, end: 2020

REACTIONS (4)
  - Death [Fatal]
  - Hypoxia [Recovering/Resolving]
  - Nephrolithiasis [Unknown]
  - Urinary tract infection bacterial [Recovering/Resolving]

NARRATIVE: CASE EVENT DATE: 202005
